FAERS Safety Report 23640880 (Version 1)
Quarter: 2024Q1

REPORT INFORMATION
  Report Type: Other
  Country: CN (occurrence: None)
  Receive Date: 20240318
  Receipt Date: 20240318
  Transmission Date: 20240410
  Serious: Yes (Other)
  Sender: FDA-Public Use
  Company Number: CN-ROCHE-3466034

PATIENT

DRUGS (4)
  1. RITUXIMAB [Suspect]
     Active Substance: RITUXIMAB
     Indication: Central nervous system lymphoma
     Dosage: DAY 1 OF EACH CYCLE, 6-8 CYCLES OF INDUCTION THERAPY
     Route: 041
  2. DEXAMETHASONE [Suspect]
     Active Substance: DEXAMETHASONE
     Indication: Central nervous system lymphoma
     Dosage: 10-15MG ON D1-D4,  6-8 CYCLES OF INDUCTION THERAPY
     Route: 065
  3. METHOTREXATE [Suspect]
     Active Substance: METHOTREXATE
     Indication: Central nervous system lymphoma
     Dosage: D2 3.5G/M2 OR 5G/M2, 6-8 CYCLES OF INDUCTION THERAPY
     Route: 065
  4. ORELABRUTINIB [Suspect]
     Active Substance: ORELABRUTINIB
     Indication: Central nervous system lymphoma
     Dosage: ONCE DAILY, AFTER MTX CLEARANCE, 150MG/D, OR 200MG/D, 6-8 CYCLES OF INDUCTION THERAPY
     Route: 065

REACTIONS (4)
  - Lymphopenia [Unknown]
  - Hyperglycaemia [Unknown]
  - Neutropenia [Unknown]
  - COVID-19 [Unknown]
